FAERS Safety Report 20819727 (Version 1)
Quarter: 2022Q2

REPORT INFORMATION
  Report Type: Spontaneous
  Country: DE (occurrence: DE)
  Receive Date: 20220512
  Receipt Date: 20220512
  Transmission Date: 20220721
  Serious: Yes (Other)
  Sender: FDA-Public Use
  Company Number: DE-BAYER-2022A067634

PATIENT

DRUGS (2)
  1. EYLEA [Suspect]
     Active Substance: AFLIBERCEPT
     Indication: Age-related macular degeneration
     Dosage: STRENGTH: 40MG/ML, TREATMENT OF RIGHT EYE (SOLUTION FOR INJECTION)
     Route: 031
     Dates: start: 201811
  2. EYLEA [Suspect]
     Active Substance: AFLIBERCEPT
     Dosage: STRENGTH: 40MG/ML, TREATMENT LEFT EYE (SOLUTION FOR INJECTION)
     Route: 031
     Dates: start: 201903

REACTIONS (5)
  - Retinal oedema [Recovered/Resolved]
  - Retinal oedema [Recovered/Resolved]
  - Retinal oedema [Recovered/Resolved]
  - Retinal oedema [Recovered/Resolved]
  - Retinal oedema [Recovered/Resolved]

NARRATIVE: CASE EVENT DATE: 20190918
